FAERS Safety Report 10013456 (Version 2)
Quarter: 2015Q4

REPORT INFORMATION
  Report Type: Spontaneous
  Country: US (occurrence: US)
  Receive Date: 20140314
  Receipt Date: 20151119
  Transmission Date: 20160304
  Serious: Yes (Hospitalization)
  Sender: FDA-Public Use
  Company Number: US-ABBVIE-14P-163-1210433-00

PATIENT
  Sex: Male

DRUGS (2)
  1. HUMIRA [Suspect]
     Active Substance: ADALIMUMAB
     Indication: MATERNAL EXPOSURE TIMING UNSPECIFIED
     Route: 064
  2. HUMIRA [Suspect]
     Active Substance: ADALIMUMAB
     Route: 063

REACTIONS (6)
  - Failure to thrive [Recovering/Resolving]
  - Aspiration [Recovered/Resolved]
  - Foetal exposure during pregnancy [Unknown]
  - Haematochezia [Recovered/Resolved]
  - Gastrooesophageal reflux disease [Recovering/Resolving]
  - Exposure during breast feeding [Unknown]

NARRATIVE: CASE EVENT DATE: 20130906
